FAERS Safety Report 7968263-3 (Version None)
Quarter: 2011Q4

REPORT INFORMATION
  Report Type: 
  Country: None (occurrence: None)
  Receive Date: 20111209
  Receipt Date: 20111206
  Transmission Date: 20120403
  Serious: Yes (Hospitalization)
  Sender: FDA-Public Use
  Company Number: PHEH2011US011066

PATIENT
  Age: 10 Year
  Sex: Female
  Weight: 34.467 kg

DRUGS (2)
  1. PULMOZYME [Concomitant]
     Dosage: UNK
  2. TOBI [Suspect]
     Dosage: 300 MG, BID IN A CYCLE OF 28 DAYS ON AND 28 DAYS OFF
     Dates: start: 20110917

REACTIONS (1)
  - INFECTIVE PULMONARY EXACERBATION OF CYSTIC FIBROSIS [None]
